FAERS Safety Report 24638793 (Version 2)
Quarter: 2024Q4

REPORT INFORMATION
  Report Type: Spontaneous
  Country: US (occurrence: US)
  Receive Date: 20241119
  Receipt Date: 20241204
  Transmission Date: 20250114
  Serious: Yes (Other)
  Sender: PIERREL
  Company Number: US-PIERREL S.P.A.-2024PIR00066

PATIENT
  Age: 53 Year
  Sex: Female

DRUGS (1)
  1. ARTICAINE [Suspect]
     Active Substance: ARTICAINE
     Indication: Dental care
     Dosage: NON-COMPANY

REACTIONS (1)
  - Angioedema [Recovered/Resolved]
